FAERS Safety Report 6329697-6 (Version None)
Quarter: 2009Q3

REPORT INFORMATION
  Report Type: 
  Country: None (occurrence: None)
  Receive Date: 20090826
  Receipt Date: 20090820
  Transmission Date: 20100115
  Serious: Yes (Hospitalization, Other)
  Sender: FDA-Public Use
  Company Number: CA-ABBOTT-09P-028-0592697-00

PATIENT
  Sex: Female
  Weight: 49.486 kg

DRUGS (1)
  1. HUMIRA [Suspect]
     Indication: RHEUMATOID ARTHRITIS
     Route: 058
     Dates: start: 20090424, end: 20090508

REACTIONS (3)
  - CHEST PAIN [None]
  - DYSPNOEA [None]
  - HYPERHIDROSIS [None]
